FAERS Safety Report 9800060 (Version 2)
Quarter: 2014Q1

REPORT INFORMATION
  Report Type: Spontaneous
  Country: US (occurrence: US)
  Receive Date: 20140106
  Receipt Date: 20140106
  Transmission Date: 20141002
  Serious: No
  Sender: FDA-Public Use
  Company Number: US-GILEAD-2010-0032126

PATIENT
  Age: 83 Year
  Sex: Male

DRUGS (13)
  1. LETAIRIS [Suspect]
     Indication: PULMONARY ARTERIAL HYPERTENSION
     Route: 048
     Dates: start: 20100917, end: 201011
  2. BENICAR [Concomitant]
  3. LASIX [Concomitant]
  4. BABY ASPIRIN [Concomitant]
  5. DIGOXIN [Concomitant]
  6. PLAVIX [Concomitant]
  7. AMLODIPINE [Concomitant]
  8. AMARYL [Concomitant]
  9. GLIMEPIRIDE [Concomitant]
  10. LIPITOR [Concomitant]
  11. SYNTHROID [Concomitant]
  12. FINASTERIDE [Concomitant]
  13. XALATAN [Concomitant]

REACTIONS (3)
  - Dizziness [Recovered/Resolved]
  - Balance disorder [Recovered/Resolved]
  - Abdominal pain upper [Recovered/Resolved]
